FAERS Safety Report 22638404 (Version 1)
Quarter: 2023Q2

REPORT INFORMATION
  Report Type: Spontaneous
  Country: US (occurrence: US)
  Receive Date: 20230626
  Receipt Date: 20230626
  Transmission Date: 20230721
  Serious: No
  Sender: FDA-Public Use
  Company Number: US-SANOFI-01654767

PATIENT
  Age: 12 Year
  Sex: Female
  Weight: 34 kg

DRUGS (1)
  1. DUPIXENT [Suspect]
     Active Substance: DUPILUMAB
     Indication: Eosinophilic oesophagitis
     Dosage: 300 MG, QOW
     Dates: start: 2022

REACTIONS (4)
  - Weight loss poor [Unknown]
  - Illness [Unknown]
  - Feeding tube user [Unknown]
  - Off label use [Unknown]

NARRATIVE: CASE EVENT DATE: 20220101
